FAERS Safety Report 15804388 (Version 2)
Quarter: 2019Q3

REPORT INFORMATION
  Report Type: Spontaneous
  Country: US (occurrence: US)
  Receive Date: 20190109
  Receipt Date: 20190812
  Transmission Date: 20191004
  Serious: No
  Sender: FDA-Public Use
  Company Number: US-MYLANLABS-2018M1095678

PATIENT
  Age: 79 Year
  Sex: Female
  Weight: 77 kg

DRUGS (5)
  1. ALKA SELTZER                       /00002701/ [Concomitant]
     Active Substance: ASPIRIN
     Indication: ABDOMINAL DISCOMFORT
     Dosage: UNK(EVERY DAY BEFORE A MEAL)
  2. FENTANYL TRANSDERMAL SYSTEM [Suspect]
     Active Substance: FENTANYL
     Indication: FIBROMYALGIA
     Dosage: 25 MICROGRAM, Q3D
     Route: 062
  3. PRAVASTATIN. [Concomitant]
     Active Substance: PRAVASTATIN
     Indication: BLOOD CHOLESTEROL INCREASED
     Dosage: 40 MILLIGRAM, QD
  4. CARVEDILOL. [Concomitant]
     Active Substance: CARVEDILOL
     Dosage: 25 MILLIGRAM, QD
  5. GABAPENTIN. [Concomitant]
     Active Substance: GABAPENTIN
     Dosage: NLY TAKE ON TUESDAY AND THURSDAY

REACTIONS (3)
  - Dyspnoea [Not Recovered/Not Resolved]
  - Constipation [Not Recovered/Not Resolved]
  - Weight increased [Not Recovered/Not Resolved]
